FAERS Safety Report 7398872-4 (Version None)
Quarter: 2011Q2

REPORT INFORMATION
  Report Type: 
  Country: None (occurrence: None)
  Receive Date: 20110407
  Receipt Date: 20110330
  Transmission Date: 20111010
  Serious: Yes (Other)
  Sender: FDA-Public Use
  Company Number: GB-ASTELLAS-2011EU001567

PATIENT
  Sex: Male

DRUGS (1)
  1. VESICARE [Suspect]
     Dosage: 10 MG, UID/QD
     Route: 048
     Dates: start: 20101123, end: 20110215

REACTIONS (1)
  - ERECTILE DYSFUNCTION [None]
